FAERS Safety Report 8309187 (Version 2)
Quarter: 2012Q4

REPORT INFORMATION
  Report Type: 
  Country: TH (occurrence: TH)
  Receive Date: 20111222
  Receipt Date: 20121001
  Transmission Date: 20130627
  Serious: Yes (Death)
  Sender: FDA-Public Use
  Company Number: PHHY2011TH110533

PATIENT
  Age: 85 Year
  Sex: Male

DRUGS (2)
  1. ZOMETA [Suspect]
     Indication: LUNG NEOPLASM MALIGNANT
     Dosage: 4 mg monthly
     Route: 042
  2. ZOMETA [Suspect]
     Indication: METASTASES TO BONE

REACTIONS (2)
  - Metastases to liver [Fatal]
  - Face oedema [Unknown]
